FAERS Safety Report 8367450-2 (Version None)
Quarter: 2012Q1

REPORT INFORMATION
  Report Type: 
  Country: None (occurrence: None)
  Receive Date: 20120323
  Receipt Date: 20111221
  Transmission Date: 20120608
  Serious: Yes (Disabling)
  Sender: FDA-Public Use
  Company Number: 163-21880-11111603

PATIENT
  Age: 78 Year
  Sex: Female

DRUGS (5)
  1. REVLIMID [Suspect]
     Indication: MULTIPLE MYELOMA
     Dosage: 10 MG, QD X 28 DAYS, PO ; 10 MG, QD X 28 DAYS, PO
     Route: 048
     Dates: start: 20110101
  2. REVLIMID [Suspect]
     Indication: MULTIPLE MYELOMA
     Dosage: 10 MG, QD X 28 DAYS, PO ; 10 MG, QD X 28 DAYS, PO
     Route: 048
     Dates: start: 20111024, end: 20111122
  3. METFORMIN HCL [Concomitant]
  4. HYDROCHLOROTHIAZIDE [Concomitant]
  5. RAMIPRIL [Concomitant]

REACTIONS (3)
  - DEHYDRATION [None]
  - RENAL FAILURE [None]
  - NASOPHARYNGITIS [None]
